FAERS Safety Report 15960080 (Version 1)
Quarter: 2019Q1

REPORT INFORMATION
  Report Type: Spontaneous
  Country: US (occurrence: US)
  Receive Date: 20190214
  Receipt Date: 20190214
  Transmission Date: 20190417
  Serious: No
  Sender: FDA-Public Use
  Company Number: US-ROCHE-2122648

PATIENT
  Sex: Male
  Weight: 64.47 kg

DRUGS (6)
  1. NITROFURANTOIN. [Concomitant]
     Active Substance: NITROFURANTOIN
     Dosage: ONGOING: UNKNOWN
     Route: 048
     Dates: start: 20180410
  2. ERIVEDGE [Suspect]
     Active Substance: VISMODEGIB
     Indication: BASAL CELL CARCINOMA
     Dosage: TALE 1 CAPSULE BY MOUTH ONCE?LATEST DOSE OF VISMODEGIB  WAS RECIEVED ON 16/OCT/2017.
     Route: 048
     Dates: start: 20170818
  3. CULTURELLE [Concomitant]
     Active Substance: LACTOBACILLUS RHAMNOSUS
     Dosage: ONGOING: UNKNOWN
     Route: 048
     Dates: start: 20180108
  4. LORATADINE. [Concomitant]
     Active Substance: LORATADINE
     Route: 048
     Dates: start: 20150430, end: 20180108
  5. MACROBID (UNITED STATES) [Concomitant]
     Route: 048
     Dates: start: 20171211, end: 20180309
  6. ADVAIR HFA [Concomitant]
     Active Substance: FLUTICASONE PROPIONATE\SALMETEROL XINAFOATE
     Route: 048
     Dates: start: 20150408, end: 20180108

REACTIONS (2)
  - Alopecia [Not Recovered/Not Resolved]
  - Fatigue [Not Recovered/Not Resolved]
